FAERS Safety Report 6819897-0 (Version None)
Quarter: 2010Q3

REPORT INFORMATION
  Report Type: 
  Country: None (occurrence: None)
  Receive Date: 20100707
  Receipt Date: 20100623
  Transmission Date: 20110219
  Serious: Yes (Death, Other)
  Sender: FDA-Public Use
  Company Number: NL-ROCHE-672710

PATIENT
  Age: 58 Year
  Sex: Male

DRUGS (5)
  1. TAMIFLU [Suspect]
     Indication: H1N1 INFLUENZA
     Dosage: FOR 5 DAYS
     Route: 048
     Dates: start: 20090101
  2. TAMIFLU [Suspect]
     Route: 048
  3. ZANAMIVIR [Suspect]
     Indication: H1N1 INFLUENZA
     Dosage: ORAL INHALATION
     Route: 065
  4. ZANAMIVIR [Suspect]
     Dosage: BECAUSE OF VENTILLATION, INTRAVENOUS ADMINISTRATION WAS STARTED
     Route: 065
  5. ZANAMIVIR [Suspect]
     Dosage: DOSE REDUCED
     Route: 065

REACTIONS (7)
  - ASPERGILLOSIS [None]
  - DRUG INEFFECTIVE [None]
  - HAEMODYNAMIC INSTABILITY [None]
  - ILEUS PARALYTIC [None]
  - PATHOGEN RESISTANCE [None]
  - RENAL FAILURE [None]
  - THROMBOCYTOPENIA [None]
